FAERS Safety Report 6599615-4 (Version None)
Quarter: 2010Q1

REPORT INFORMATION
  Report Type: 
  Country: None (occurrence: None)
  Receive Date: 20100224
  Receipt Date: 20100218
  Transmission Date: 20100710
  Serious: Yes (Death, Other)
  Sender: FDA-Public Use
  Company Number: US-SANOFI-AVENTIS-200920493GDDC

PATIENT
  Age: 63 Year
  Sex: Female

DRUGS (6)
  1. DOCETAXEL [Suspect]
     Indication: BREAST CANCER
     Dosage: DOSE UNIT: 75 MG
     Route: 042
     Dates: start: 20020807, end: 20020807
  2. DOCETAXEL [Suspect]
     Dosage: DOSE UNIT: 75 MG
     Route: 042
     Dates: start: 20021119, end: 20021119
  3. CARBOPLATIN [Suspect]
     Route: 042
     Dates: start: 20020807, end: 20020807
  4. CARBOPLATIN [Suspect]
     Route: 042
     Dates: start: 20021119, end: 20021119
  5. HERCEPTIN [Suspect]
     Route: 042
     Dates: start: 20020807, end: 20030722
  6. THERAPEUTIC RADIOPHARMACEUTICALS [Suspect]
     Indication: BREAST CANCER
     Dates: start: 20021211, end: 20030203

REACTIONS (9)
  - ANAEMIA [None]
  - FATIGUE [None]
  - HYPOTENSION [None]
  - LABORATORY TEST ABNORMAL [None]
  - MYELODYSPLASTIC SYNDROME [None]
  - NON-HODGKIN'S LYMPHOMA [None]
  - PANCYTOPENIA [None]
  - SEPSIS [None]
  - UNRESPONSIVE TO STIMULI [None]
